FAERS Safety Report 9500435 (Version 1)
Quarter: 2013Q1

REPORT INFORMATION
  Report Type: Spontaneous
  Country: US (occurrence: None)
  Receive Date: 20130107
  Receipt Date: 20130107
  Transmission Date: 20140127
  Serious: Yes (Other)
  Sender: FDA-Public Use
  Company Number: PHEH2012US017443

PATIENT
  Age: 47 Year
  Sex: Female
  Weight: 61.4 kg

DRUGS (2)
  1. GILENYA [Suspect]
     Route: 048
     Dates: start: 20120705
  2. LEXAPRO [Suspect]
     Route: 048
     Dates: start: 201102

REACTIONS (2)
  - White blood cell count decreased [None]
  - Lymphopenia [None]
